FAERS Safety Report 9455137 (Version 1)
Quarter: 2013Q3

REPORT INFORMATION
  Report Type: Other
  Country: IE (occurrence: GB)
  Receive Date: 20130813
  Receipt Date: 20130813
  Transmission Date: 20140515
  Serious: Yes (Congenital Anomaly)
  Sender: FDA-Public Use
  Company Number: GB-LUPIN PHARMACEUTICALS INC.-2013-01482

PATIENT
  Sex: Female
  Weight: 1.4 kg

DRUGS (2)
  1. LEVETIRACETAM [Suspect]
     Indication: CONVULSION
     Route: 064
  2. LEVETIRACETAM [Suspect]
     Indication: CONVULSION
     Route: 064

REACTIONS (1)
  - Inguinal hernia [Unknown]
